FAERS Safety Report 4663596-0 (Version None)
Quarter: 2005Q2

REPORT INFORMATION
  Report Type: 
  Country: None (occurrence: None)
  Receive Date: 20050517
  Receipt Date: 20050427
  Transmission Date: 20051028
  Serious: Yes (Hospitalization)
  Sender: FDA-Public Use
  Company Number: IE-ROCHE-403446

PATIENT
  Age: 35 Year
  Sex: Female
  Weight: 117.3 kg

DRUGS (2)
  1. XENICAL [Suspect]
     Indication: OBESITY
     Route: 048
     Dates: start: 20040324, end: 20040815
  2. XENICAL [Suspect]
     Route: 048
     Dates: end: 20050424

REACTIONS (3)
  - CHEST PAIN [None]
  - DYSPNOEA [None]
  - NON-CARDIAC CHEST PAIN [None]
